FAERS Safety Report 7465551-4 (Version None)
Quarter: 2011Q1

REPORT INFORMATION
  Report Type: 
  Country: None (occurrence: None)
  Receive Date: 20110302
  Receipt Date: 20101005
  Transmission Date: 20110831
  Serious: Yes (Hospitalization)
  Sender: FDA-Public Use
  Company Number: 163-21880-10080716

PATIENT
  Age: 67 Year
  Sex: Male

DRUGS (1)
  1. REVLIMID [Suspect]
     Indication: MULTIPLE MYELOMA
     Dosage: 5 MG, EVERY DAY FOR 21 DAYS ON AND 7 DAY OFF, PO
     Route: 048
     Dates: start: 20100316

REACTIONS (5)
  - CONCUSSION [None]
  - MUSCULAR WEAKNESS [None]
  - FALL [None]
  - DIZZINESS [None]
  - AMNESIA [None]
